FAERS Safety Report 20476461 (Version 2)
Quarter: 2022Q1

REPORT INFORMATION
  Report Type: Spontaneous
  Country: IL (occurrence: None)
  Receive Date: 20220215
  Receipt Date: 20220217
  Transmission Date: 20220423
  Serious: Yes (Death, Other)
  Sender: FDA-Public Use
  Company Number: IL-ROCHE-2950859

PATIENT
  Age: 54 Year
  Sex: Male

DRUGS (15)
  1. MABTHERA [Suspect]
     Active Substance: RITUXIMAB
     Indication: Mantle cell lymphoma
     Dosage: WITH CHOP THERAPY
     Route: 065
     Dates: start: 20120112
  2. MABTHERA [Suspect]
     Active Substance: RITUXIMAB
     Dosage: DHAP THERAPY
     Route: 065
     Dates: end: 20130103
  3. MABTHERA [Suspect]
     Active Substance: RITUXIMAB
     Dosage: R-ICE
     Route: 065
     Dates: start: 20210107, end: 20210107
  4. POLATUZUMAB VEDOTIN [Suspect]
     Active Substance: POLATUZUMAB VEDOTIN
     Indication: Mantle cell lymphoma
     Route: 065
     Dates: start: 20180103, end: 20180108
  5. VENETOCLAX [Suspect]
     Active Substance: VENETOCLAX
     Indication: Mantle cell lymphoma
     Route: 065
     Dates: start: 202010, end: 202011
  6. VENETOCLAX [Suspect]
     Active Substance: VENETOCLAX
     Route: 065
     Dates: start: 202011, end: 202106
  7. GAZYVA [Suspect]
     Active Substance: OBINUTUZUMAB
     Indication: Mantle cell lymphoma
     Route: 042
     Dates: start: 202011, end: 202106
  8. CYCLOPHOSPHAMIDE [Suspect]
     Active Substance: CYCLOPHOSPHAMIDE
     Indication: Mantle cell lymphoma
     Route: 065
     Dates: start: 20120112, end: 20130103
  9. DOXORUBICIN [Suspect]
     Active Substance: DOXORUBICIN
     Indication: Mantle cell lymphoma
     Route: 065
     Dates: start: 20120112, end: 20130103
  10. VINCRISTINE [Suspect]
     Active Substance: VINCRISTINE
     Indication: Mantle cell lymphoma
     Route: 065
     Dates: start: 20120112, end: 20130103
  11. PREDNISONE [Suspect]
     Active Substance: PREDNISONE
     Indication: Mantle cell lymphoma
     Route: 065
     Dates: start: 20120112, end: 20130103
  12. IBRUTINIB [Suspect]
     Active Substance: IBRUTINIB
     Indication: Mantle cell lymphoma
     Route: 065
     Dates: start: 20180110, end: 20200104
  13. IFOSFAMIDE [Suspect]
     Active Substance: IFOSFAMIDE
     Indication: Mantle cell lymphoma
     Route: 065
     Dates: start: 20210107, end: 20210107
  14. CYTARABINE [Suspect]
     Active Substance: CYTARABINE
     Indication: Mantle cell lymphoma
     Route: 065
     Dates: start: 20210107, end: 20210107
  15. ETOPOSIDE [Suspect]
     Active Substance: ETOPOSIDE
     Indication: Mantle cell lymphoma
     Route: 065
     Dates: start: 20210107, end: 20210107

REACTIONS (8)
  - Ill-defined disorder [Unknown]
  - Disease progression [Unknown]
  - C-reactive protein increased [Unknown]
  - Pyrexia [Unknown]
  - Bronchiolitis [Unknown]
  - Bronchopulmonary aspergillosis [Unknown]
  - Pleural effusion [Unknown]
  - Death [Fatal]
